FAERS Safety Report 9760995 (Version 1)
Quarter: 2013Q4

REPORT INFORMATION
  Report Type: Spontaneous
  Country: MY (occurrence: MY)
  Receive Date: 20131216
  Receipt Date: 20131216
  Transmission Date: 20140711
  Serious: Yes (Other)
  Sender: FDA-Public Use
  Company Number: MY-PFIZER INC-2013357737

PATIENT
  Sex: Male

DRUGS (3)
  1. LIPITOR [Suspect]
     Dosage: UNK
  2. LIPITOR [Suspect]
     Dosage: UNK
  3. CRESTOR [Suspect]
     Dosage: UNK

REACTIONS (5)
  - Pelvic inflammatory disease [Unknown]
  - Muscle spasms [Unknown]
  - Back pain [Unknown]
  - Thyroglobulin increased [Unknown]
  - Hypoaesthesia [Not Recovered/Not Resolved]
